FAERS Safety Report 4983520-0 (Version None)
Quarter: 2006Q2

REPORT INFORMATION
  Report Type: 
  Country: None (occurrence: None)
  Receive Date: 20060419
  Receipt Date: 20060406
  Transmission Date: 20061013
  Serious: Yes (Other)
  Sender: FDA-Public Use
  Company Number: 2006048782

PATIENT
  Age: 47 Year
  Sex: Male

DRUGS (1)
  1. RELPAX [Suspect]
     Indication: MIGRAINE
     Dosage: DAILY AS NECESSARY

REACTIONS (3)
  - DRUG DEPENDENCE [None]
  - DYSPHAGIA [None]
  - PHOTOPHOBIA [None]
